FAERS Safety Report 9923459 (Version 2)
Quarter: 2016Q4

REPORT INFORMATION
  Report Type: Report from Study
  Country: US (occurrence: US)
  Receive Date: 20140225
  Receipt Date: 20161103
  Transmission Date: 20170207
  Serious: Yes (Life-Threatening, Hospitalization, Other)
  Sender: FDA-Public Use
  Company Number: US-AMGEN-USASP2013080522

PATIENT
  Age: 52 Year
  Sex: Female

DRUGS (7)
  1. ENBREL [Suspect]
     Active Substance: ETANERCEPT
     Indication: PSORIATIC ARTHROPATHY
  2. HUMIRA [Concomitant]
     Active Substance: ADALIMUMAB
     Dosage: UNK
  3. ENBREL [Suspect]
     Active Substance: ETANERCEPT
     Indication: ANKYLOSING SPONDYLITIS
  4. REMICADE [Suspect]
     Active Substance: INFLIXIMAB
     Indication: PRODUCT USED FOR UNKNOWN INDICATION
     Dosage: UNK
     Route: 065
  5. PREDNISONE. [Concomitant]
     Active Substance: PREDNISONE
     Dosage: UNK
  6. CYCLOSPORINE. [Suspect]
     Active Substance: CYCLOSPORINE
     Indication: PRODUCT USED FOR UNKNOWN INDICATION
     Dosage: UNK
     Route: 065
  7. ENBREL [Suspect]
     Active Substance: ETANERCEPT
     Indication: PSORIASIS
     Dosage: 50 MG, TWICE A WEEK
     Route: 065
     Dates: start: 20000501

REACTIONS (17)
  - Diarrhoea [Unknown]
  - Staphylococcal infection [Not Recovered/Not Resolved]
  - Headache [Recovered/Resolved]
  - Dyspnoea [Unknown]
  - Mobility decreased [Unknown]
  - Hot flush [Unknown]
  - Erythrodermic psoriasis [Not Recovered/Not Resolved]
  - Gangrene [Unknown]
  - Psoriasis [Unknown]
  - Arthralgia [Not Recovered/Not Resolved]
  - Arthritis [Unknown]
  - Nausea [Recovered/Resolved]
  - Ligament sprain [Not Recovered/Not Resolved]
  - Malaise [Recovered/Resolved]
  - Joint dislocation [Unknown]
  - Bone disorder [Not Recovered/Not Resolved]
  - Erythema [Unknown]

NARRATIVE: CASE EVENT DATE: 200905
